FAERS Safety Report 14992273 (Version 1)
Quarter: 2018Q2

REPORT INFORMATION
  Report Type: Spontaneous
  Country: US (occurrence: US)
  Receive Date: 20180608
  Receipt Date: 20180608
  Transmission Date: 20180711
  Serious: No
  Sender: FDA-Public Use
  Company Number: US-JNJFOC-20180535355

PATIENT
  Sex: Male

DRUGS (11)
  1. HYDREA [Concomitant]
     Active Substance: HYDROXYUREA
     Route: 065
  2. ZESTRIL [Concomitant]
     Active Substance: LISINOPRIL
     Route: 065
  3. THERAGRAN [Concomitant]
     Active Substance: VITAMINS
     Route: 065
  4. DELTASON [Concomitant]
     Active Substance: PREDNISONE
     Route: 065
  5. TOPROL XL [Concomitant]
     Active Substance: METOPROLOL SUCCINATE
     Dosage: 24 HOUR TABLET
     Route: 065
  6. CALCIUM CITRATE [Concomitant]
     Active Substance: CALCIUM CITRATE
     Dosage: 950 MG
     Route: 065
  7. ZYTIGA [Suspect]
     Active Substance: ABIRATERONE ACETATE
     Indication: PROSTATE CANCER
     Route: 048
  8. ECOTRIN [Concomitant]
     Active Substance: ASPIRIN
     Route: 065
  9. FLOMAX [Concomitant]
     Active Substance: TAMSULOSIN HYDROCHLORIDE
     Route: 065
  10. NORVASC [Concomitant]
     Active Substance: AMLODIPINE BESYLATE
     Route: 065
  11. PRINIVIL [Concomitant]
     Active Substance: LISINOPRIL
     Route: 065

REACTIONS (1)
  - Adverse event [Unknown]
